FAERS Safety Report 14354406 (Version 2)
Quarter: 2018Q1

REPORT INFORMATION
  Report Type: Spontaneous
  Country: JP (occurrence: JP)
  Receive Date: 20180105
  Receipt Date: 20180205
  Transmission Date: 20180509
  Serious: Yes (Other)
  Sender: FDA-Public Use
  Company Number: JP-ASTELLAS-2017JP025833AA

PATIENT
  Age: 28 Year
  Sex: Female

DRUGS (1)
  1. PROGRAF [Suspect]
     Active Substance: TACROLIMUS\TACROLIMUS ANHYDROUS
     Indication: LUPUS NEPHRITIS
     Route: 048
     Dates: end: 20100318

REACTIONS (3)
  - Abortion missed [Not Recovered/Not Resolved]
  - Maternal exposure during pregnancy [Unknown]
  - Prescribed underdose [Unknown]

NARRATIVE: CASE EVENT DATE: 2010
